FAERS Safety Report 7496527-9 (Version None)
Quarter: 2011Q2

REPORT INFORMATION
  Report Type: 
  Country: None (occurrence: None)
  Receive Date: 20110523
  Receipt Date: 20110513
  Transmission Date: 20111010
  Serious: Yes (Hospitalization, Other)
  Sender: FDA-Public Use
  Company Number: US-BAXTER-2011BH014517

PATIENT
  Age: 70 Year
  Sex: Female

DRUGS (2)
  1. DIANEAL [Suspect]
     Indication: PERITONEAL DIALYSIS
     Route: 033
  2. DIANEAL [Suspect]
     Indication: PERITONEAL DIALYSIS
     Route: 033

REACTIONS (7)
  - VAGINITIS BACTERIAL [None]
  - GENITAL HERPES [None]
  - MUSCLE ENZYME DECREASED [None]
  - FUNGAL INFECTION [None]
  - VULVOVAGINITIS [None]
  - VIRAL INFECTION [None]
  - RHABDOMYOLYSIS [None]
